FAERS Safety Report 11001728 (Version 1)
Quarter: 2015Q2

REPORT INFORMATION
  Report Type: Spontaneous
  Country: US (occurrence: US)
  Receive Date: 20150408
  Receipt Date: 20150408
  Transmission Date: 20150821
  Serious: Yes (Death)
  Sender: FDA-Public Use
  Company Number: US-ASTRAZENECA-2014SE01653

PATIENT
  Age: 27445 Day
  Sex: Male

DRUGS (13)
  1. CRESTOR [Concomitant]
     Active Substance: ROSUVASTATIN CALCIUM
  2. PEPCID [Concomitant]
     Active Substance: FAMOTIDINE
  3. DOXAZOSIN [Concomitant]
     Active Substance: DOXAZOSIN\DOXAZOSIN MESYLATE
  4. BYETTA [Suspect]
     Active Substance: EXENATIDE
     Route: 065
     Dates: start: 20090608, end: 2010
  5. BYETTA [Suspect]
     Active Substance: EXENATIDE
     Route: 065
     Dates: start: 20060927
  6. MAGNESIUM [Concomitant]
     Active Substance: MAGNESIUM
  7. FUROSEMIDE. [Concomitant]
     Active Substance: FUROSEMIDE
  8. PLAVIX [Concomitant]
     Active Substance: CLOPIDOGREL BISULFATE
  9. LISINOPRIL. [Concomitant]
     Active Substance: LISINOPRIL
  10. NOVOLOG [Concomitant]
     Active Substance: INSULIN ASPART
     Dosage: INJECT 10 UNITS BY SUBCUTANEOUS ROUTE 2 TIMES  PER DAY
  11. MECLIZINE [Concomitant]
     Active Substance: MECLIZINE\MECLIZINE HYDROCHLORIDE
  12. METFORMIN [Concomitant]
     Active Substance: METFORMIN HYDROCHLORIDE
  13. JANUVIA [Concomitant]
     Active Substance: SITAGLIPTIN PHOSPHATE

REACTIONS (1)
  - Adenocarcinoma pancreas [Fatal]

NARRATIVE: CASE EVENT DATE: 20120125
